FAERS Safety Report 8174210-4 (Version None)
Quarter: 2012Q1

REPORT INFORMATION
  Report Type: 
  Country: None (occurrence: None)
  Receive Date: 20120227
  Receipt Date: 20120213
  Transmission Date: 20120608
  Serious: Yes (Hospitalization, Disabling, Other)
  Sender: FDA-Public Use
  Company Number: 2010AL002791

PATIENT
  Age: 50 Year
  Sex: Male

DRUGS (48)
  1. CEPHALEXIN [Concomitant]
  2. CRESTOR [Concomitant]
  3. ERY-TAB [Concomitant]
  4. PROTONIX [Concomitant]
  5. SOMA [Concomitant]
  6. SULFAMETHOXAZOLE AND TRIMETHOPRIM [Concomitant]
  7. TRIAMTERENE AND HYDROCHLOROTHIAZIDE [Concomitant]
  8. VALIUM [Concomitant]
  9. ZOLPIDEM [Concomitant]
  10. AMITRIPTYLINE HCL [Concomitant]
  11. METHYLPREDNISOLONE [Concomitant]
  12. MUCINEX [Concomitant]
  13. ROXICODONE [Concomitant]
  14. TIZANIDINE HCL [Concomitant]
  15. CARISOPRODOL [Concomitant]
  16. IBUPROFEN TABLETS [Concomitant]
  17. MEPROZINE [Concomitant]
  18. UNIRETIC [Concomitant]
  19. METOCLOPRAMIDE HYDROCHLORIDE [Suspect]
     Indication: GASTROOESOPHAGEAL REFLUX DISEASE
     Dosage: 10 MG;BID;PO
     Route: 048
     Dates: start: 20020101, end: 20091101
  20. DICLOFENAC SODIUM [Concomitant]
  21. LEVITRA [Concomitant]
  22. PRILOSEC [Concomitant]
  23. SUBOXONE [Concomitant]
  24. BROVANA [Concomitant]
  25. CELEXA [Concomitant]
  26. COMBIVENT [Concomitant]
  27. FLUTICASONE PROPIONATE [Concomitant]
  28. HYDROCODONE BITARTRATE AND ACETAMINOPHEN [Concomitant]
  29. LISINOPRIL [Concomitant]
  30. RANITIDINE [Concomitant]
  31. ALBUTEROL [Concomitant]
  32. ATROVENT [Concomitant]
  33. BACLOFEN [Concomitant]
  34. C-PHEN DM [Concomitant]
  35. CHLORZOXAZONE [Concomitant]
  36. DOC-Q-LACE [Concomitant]
  37. OMEPRAZOLE [Concomitant]
  38. PROMETHAZINE [Concomitant]
  39. AZITHROMYCIN [Concomitant]
  40. CIPROFLOXACIN [Concomitant]
  41. CITALOPRAM HYDROBROMIDE [Concomitant]
  42. MOXIPRIL/HCTZ [Concomitant]
  43. COGENTIN [Concomitant]
  44. DIAZEPAM [Concomitant]
  45. LYRICA [Concomitant]
  46. MORPHINE [Concomitant]
  47. OXYCODONE HCL AND ACETAMINOPHEN [Concomitant]
  48. VERAPAMIL EXTENDED-RELEASE [Concomitant]

REACTIONS (31)
  - JOINT INJURY [None]
  - SPINAL OSTEOARTHRITIS [None]
  - INCORRECT DRUG ADMINISTRATION DURATION [None]
  - MUSCLE CONTRACTIONS INVOLUNTARY [None]
  - TARDIVE DYSKINESIA [None]
  - TREMOR [None]
  - ARTHRITIS [None]
  - ECONOMIC PROBLEM [None]
  - DYSKINESIA [None]
  - PAIN [None]
  - FALL [None]
  - NASOPHARYNGITIS [None]
  - RADICULOPATHY [None]
  - WALKING AID USER [None]
  - DYSARTHRIA [None]
  - HYPERTENSION [None]
  - GASTROOESOPHAGEAL REFLUX DISEASE [None]
  - BACK PAIN [None]
  - MOVEMENT DISORDER [None]
  - SENSORY LOSS [None]
  - ATAXIA [None]
  - DEPRESSION [None]
  - NECK PAIN [None]
  - SINUS DISORDER [None]
  - EMOTIONAL DISORDER [None]
  - INJURY [None]
  - CHRONIC OBSTRUCTIVE PULMONARY DISEASE [None]
  - ACTIVITIES OF DAILY LIVING IMPAIRED [None]
  - NEUROPATHY PERIPHERAL [None]
  - GAIT DISTURBANCE [None]
  - ANXIETY [None]
